FAERS Safety Report 10365288 (Version 12)
Quarter: 2015Q2

REPORT INFORMATION
  Report Type: Spontaneous
  Country: US (occurrence: US)
  Receive Date: 20140806
  Receipt Date: 20150520
  Transmission Date: 20150821
  Serious: Yes (Other)
  Sender: FDA-Public Use
  Company Number: US-PFIZER INC-2014212687

PATIENT
  Age: 71 Year
  Sex: Male
  Weight: 102 kg

DRUGS (26)
  1. METOPROLOL [Concomitant]
     Active Substance: METOPROLOL
     Dosage: 150 MG, 2X/DAY
  2. METOPROLOL TARTRATE. [Concomitant]
     Active Substance: METOPROLOL TARTRATE
     Dosage: 150 MG, 2X/DAY
     Route: 048
     Dates: start: 20100104
  3. ADVIL [Concomitant]
     Active Substance: IBUPROFEN
     Dosage: 200 MG, AS NEEDED
     Route: 048
     Dates: end: 20140903
  4. FLEXITOL [Concomitant]
     Dosage: UNK, AS NEEDED
  5. VITAMIN B6 [Concomitant]
     Active Substance: PYRIDOXINE HYDROCHLORIDE
     Dosage: 50 MG, DAILY
  6. SUTENT [Suspect]
     Active Substance: SUNITINIB MALATE
     Dosage: 37.5 MG, ONCE DAILY FOR 4 WEEKS THEN 2 WEEKS OFF
     Route: 048
     Dates: start: 20141003, end: 20150130
  7. NOVOLOG MIX 70/30 [Concomitant]
     Active Substance: INSULIN ASPART
     Dosage: 100 IU/ML, 2X/DAY (17 UNITS Q AM AND 24 UNITS Q PM)
     Route: 058
     Dates: start: 20110218
  8. CORTIZONE 10 [Concomitant]
     Active Substance: HYDROCORTISONE
     Dosage: UNK
     Route: 061
  9. LOTEMAX [Concomitant]
     Active Substance: LOTEPREDNOL ETABONATE
     Dosage: UNK, AS NEEDED
  10. SUTENT [Suspect]
     Active Substance: SUNITINIB MALATE
     Dosage: 50 MG, DAILY FOR 28 DAYS WITH 14 DAYS
     Route: 048
     Dates: start: 20140821, end: 20141001
  11. VERAPAMIL ER [Concomitant]
     Active Substance: VERAPAMIL HYDROCHLORIDE
     Dosage: 240 MG, 2X/DAY
     Route: 048
     Dates: start: 19930930, end: 20141215
  12. TEAR DROP [Concomitant]
     Active Substance: POLYVINYL ALCOHOL
     Dosage: UNK, AS NEEDED
     Route: 047
     Dates: end: 20140906
  13. BENADRYL [Concomitant]
     Active Substance: DIPHENHYDRAMINE HYDROCHLORIDE
     Dosage: UNK, AS NEEDED
  14. CLOBETAZOL [Concomitant]
     Dosage: UNK, AS NEEDED
  15. LISINOPRIL. [Concomitant]
     Active Substance: LISINOPRIL
     Dosage: 20 MG, 2X/DAY
  16. LASIX [Concomitant]
     Active Substance: FUROSEMIDE
     Dosage: 20 MG, 3 DAYS WEEKLY (M-W-F)
     Dates: start: 20140507, end: 20140903
  17. TERAZOSIN ER [Concomitant]
     Indication: BLOOD PRESSURE ABNORMAL
     Dosage: 5 MG, 1X/DAY AT BED TIME (HS)
     Route: 048
     Dates: start: 20080805
  18. METAMUCIL [Concomitant]
     Active Substance: PLANTAGO SEED
     Dosage: 3.4 GRAM/12 GRAM 2 TSP, 2X/DAY
     Route: 048
     Dates: start: 1992
  19. ADVIL [Concomitant]
     Active Substance: IBUPROFEN
     Dosage: 400 MG, (200MG 2 TABS AS NEEDED)
  20. SUTENT [Suspect]
     Active Substance: SUNITINIB MALATE
     Indication: METASTATIC RENAL CELL CARCINOMA
     Dosage: 50 MG, CYCLIC
     Route: 048
     Dates: start: 20140724, end: 20140813
  21. FOSINOPRIL [Concomitant]
     Active Substance: FOSINOPRIL
     Dosage: 20 MG, 2X/DAY
     Route: 048
     Dates: start: 19960524
  22. SUTENT [Suspect]
     Active Substance: SUNITINIB MALATE
     Dosage: 25 MG DAILY, CYCLIC (4 WEEKS ON AND 2 WEEKS OFF)
     Dates: start: 20150223, end: 20150322
  23. KLOR-CON [Concomitant]
     Active Substance: POTASSIUM CHLORIDE
     Dosage: 10 MEQ, 3 DAYS WEEKLY (M-W-F)
     Dates: start: 20021214, end: 20140903
  24. LOVASTATIN. [Concomitant]
     Active Substance: LOVASTATIN
     Dosage: 20 MG, 1X/DAY (IN EVENING)
     Route: 048
     Dates: start: 20130930
  25. ONDANSETRON [Concomitant]
     Active Substance: ONDANSETRON
     Dosage: UNK, AS NEEDED
  26. CLONIDINE. [Concomitant]
     Active Substance: CLONIDINE
     Dosage: UNK, AS NEEDED

REACTIONS (21)
  - Rash [Recovered/Resolved]
  - Pain in extremity [Recovered/Resolved]
  - Hypertension [Not Recovered/Not Resolved]
  - Dizziness postural [Not Recovered/Not Resolved]
  - Lymphadenopathy [Recovered/Resolved]
  - Asthenia [Not Recovered/Not Resolved]
  - Eye pain [Recovered/Resolved]
  - Diabetes mellitus [Not Recovered/Not Resolved]
  - Lacrimation increased [Recovered/Resolved]
  - Vomiting [Recovered/Resolved]
  - Vision blurred [Recovered/Resolved]
  - Thrombocytopenia [Recovered/Resolved]
  - Fatigue [Not Recovered/Not Resolved]
  - Palmar-plantar erythrodysaesthesia syndrome [Not Recovered/Not Resolved]
  - Blood creatinine increased [Unknown]
  - Deafness [Recovered/Resolved]
  - Ocular hyperaemia [Recovered/Resolved]
  - Blood glucose increased [Not Recovered/Not Resolved]
  - Pruritus [Recovered/Resolved]
  - Nausea [Recovered/Resolved]
  - Upper respiratory tract infection [Recovered/Resolved]

NARRATIVE: CASE EVENT DATE: 2014
